FAERS Safety Report 17580436 (Version 11)
Quarter: 2020Q4

REPORT INFORMATION
  Report Type: Report from Study
  Country: US (occurrence: US)
  Receive Date: 20200325
  Receipt Date: 20201127
  Transmission Date: 20210113
  Serious: Yes (Other)
  Sender: FDA-Public Use
  Company Number: NVSC2020US078086

PATIENT
  Age: 68 Year
  Sex: Female

DRUGS (2)
  1. ENTRESTO [Suspect]
     Active Substance: SACUBITRIL\VALSARTAN
     Indication: CARDIAC FAILURE CHRONIC
     Dosage: UNK , BID
     Route: 048
     Dates: start: 20200303
  2. ENTRESTO [Suspect]
     Active Substance: SACUBITRIL\VALSARTAN
     Dosage: 0.5 DF, BID (97/103 MG HALF TABLET IN THE MORNING AND HALF TABLET IN THE EVENING)
     Route: 048

REACTIONS (8)
  - Nasopharyngitis [Unknown]
  - Pyrexia [Recovering/Resolving]
  - Wrong technique in product usage process [Unknown]
  - Head discomfort [Unknown]
  - Hypotension [Not Recovered/Not Resolved]
  - Cough [Not Recovered/Not Resolved]
  - Thyroid hormones increased [Unknown]
  - Fatigue [Unknown]

NARRATIVE: CASE EVENT DATE: 20200325
